FAERS Safety Report 4562907-4 (Version None)
Quarter: 2005Q1

REPORT INFORMATION
  Report Type: 
  Country: None (occurrence: None)
  Receive Date: 20050121
  Receipt Date: 20050111
  Transmission Date: 20050727
  Serious: Yes (Disabling)
  Sender: FDA-Public Use
  Company Number: 2005005140

PATIENT
  Age: 13 Year
  Sex: Female
  Weight: 32 kg

DRUGS (1)
  1. SOMATROPIN (SOMATROPIN) [Suspect]
     Indication: HYPOPITUITARISM
     Dosage: 1.4 MG (1.4 MG), SUBCUTANEOUS
     Route: 058
     Dates: start: 20011001, end: 20040206

REACTIONS (3)
  - GLIOMA [None]
  - MENINGIOMA [None]
  - NEUROFIBROMATOSIS [None]
